FAERS Safety Report 7884980-8 (Version None)
Quarter: 2011Q4

REPORT INFORMATION
  Report Type: 
  Country: None (occurrence: None)
  Receive Date: 20111102
  Receipt Date: 20111021
  Transmission Date: 20120403
  Serious: Yes (Other)
  Sender: FDA-Public Use
  Company Number: SE-ELI_LILLY_AND_COMPANY-SE201005000769

PATIENT
  Weight: 75.8 kg

DRUGS (1)
  1. ATOMOXETINE HCL [Suspect]
     Indication: ATTENTION DEFICIT/HYPERACTIVITY DISORDER
     Dosage: 100 MG, DAILY (1/D)
     Route: 048
     Dates: start: 20081105

REACTIONS (2)
  - MATERNAL EXPOSURE BEFORE PREGNANCY [None]
  - ABORTION SPONTANEOUS [None]
